FAERS Safety Report 19394404 (Version 1)
Quarter: 2021Q2

REPORT INFORMATION
  Report Type: Spontaneous
  Country: DE (occurrence: DE)
  Receive Date: 20210609
  Receipt Date: 20210609
  Transmission Date: 20210717
  Serious: Yes (Other)
  Sender: FDA-Public Use
  Company Number: DE-SUN PHARMACEUTICAL INDUSTRIES LTD-2021R1-299517

PATIENT
  Age: 52 Year
  Sex: Female

DRUGS (2)
  1. METHOTREXATE. [Suspect]
     Active Substance: METHOTREXATE
     Indication: URTICARIA CHRONIC
     Dosage: UNK
     Route: 065
  2. OMALIZUMAB. [Suspect]
     Active Substance: OMALIZUMAB
     Indication: URTICARIA CHRONIC
     Dosage: UNK
     Route: 065

REACTIONS (1)
  - Treatment failure [Unknown]
